FAERS Safety Report 4449302-3 (Version None)
Quarter: 2004Q3

REPORT INFORMATION
  Report Type: 
  Country: None (occurrence: None)
  Receive Date: 20040910
  Receipt Date: 20040825
  Transmission Date: 20050211
  Serious: Yes (Hospitalization, Other)
  Sender: FDA-Public Use
  Company Number: 2004IM000806

PATIENT
  Age: 68 Year
  Sex: Female

DRUGS (3)
  1. INFERGEN [Suspect]
     Indication: HEPATITIS C
     Dosage: QD; SUBCUTANEOUS
     Route: 058
     Dates: start: 20040416, end: 20040807
  2. URSO [Suspect]
     Indication: HEPATITIS C
     Dosage: 200 MG; TID; ORAL
     Route: 048
     Dates: start: 20040416, end: 20040807
  3. SOLON [Suspect]
     Indication: GASTRITIS
     Dosage: 100 MG; TID; ORAL
     Route: 048
     Dates: start: 20040416, end: 20040807

REACTIONS (4)
  - ALANINE AMINOTRANSFERASE INCREASED [None]
  - ASPARTATE AMINOTRANSFERASE INCREASED [None]
  - HEPATIC FUNCTION ABNORMAL [None]
  - RASH [None]
